FAERS Safety Report 19968953 (Version 1)
Quarter: 2021Q4

REPORT INFORMATION
  Report Type: Spontaneous
  Country: US (occurrence: US)
  Receive Date: 20211015
  Receipt Date: 20211015
  Transmission Date: 20220304
  Serious: Yes (Hospitalization)
  Sender: FDA-Public Use
  Company Number: None

PATIENT
  Sex: Female

DRUGS (2)
  1. NEORAL [Suspect]
     Active Substance: CYCLOSPORINE
     Indication: Renal transplant
     Dosage: NEORAL: 25MG  3 CAPSULES (75 MG) BY MOUTH  MORNING AND 4 CAPSULES (100MG) BY MOUTH
     Route: 048
     Dates: start: 201507
  2. CELLCEPT [Suspect]
     Active Substance: MYCOPHENOLATE MOFETIL\MYCOPHENOLATE MOFETIL HYDROCHLORIDE
     Indication: Renal transplant
     Route: 048
     Dates: start: 201507

REACTIONS (4)
  - Cerebrovascular accident [None]
  - Nausea [None]
  - Vomiting [None]
  - Chills [None]
